FAERS Safety Report 16853325 (Version 1)
Quarter: 2019Q3

REPORT INFORMATION
  Report Type: Spontaneous
  Country: US (occurrence: US)
  Receive Date: 20190925
  Receipt Date: 20190925
  Transmission Date: 20191005
  Serious: No
  Sender: FDA-Public Use
  Company Number: US-BIOMARINAP-US-2019-125764

PATIENT

DRUGS (1)
  1. PALYNZIQ [Suspect]
     Active Substance: PEGVALIASE-PQPZ
     Indication: PHENYLKETONURIA
     Dosage: 2.5 MILLIGRAM, QW
     Route: 058
     Dates: start: 20190905

REACTIONS (6)
  - Pyrexia [Unknown]
  - Injection site erythema [Unknown]
  - Arthralgia [Unknown]
  - Product dose omission [Unknown]
  - Cellulitis [Recovering/Resolving]
  - Injection site swelling [Unknown]

NARRATIVE: CASE EVENT DATE: 201909
